FAERS Safety Report 21986714 (Version 1)
Quarter: 2023Q1

REPORT INFORMATION
  Report Type: Spontaneous
  Country: CH (occurrence: CH)
  Receive Date: 20230213
  Receipt Date: 20230213
  Transmission Date: 20230418
  Serious: Yes (Other)
  Sender: FDA-Public Use
  Company Number: None

PATIENT
  Age: 52 Year
  Sex: Male
  Weight: 83 kg

DRUGS (1)
  1. VARDENAFIL [Suspect]
     Active Substance: VARDENAFIL HYDROCHLORIDE
     Indication: Product used for unknown indication
     Route: 048

REACTIONS (8)
  - Erectile dysfunction [Unknown]
  - Headache [Unknown]
  - Somnolence [Unknown]
  - Flushing [Unknown]
  - Nasal congestion [Unknown]
  - Somnolence [Unknown]
  - Heart rate increased [Unknown]
  - Visual impairment [Unknown]
